FAERS Safety Report 9517546 (Version 1)
Quarter: 2013Q3

REPORT INFORMATION
  Report Type: Spontaneous
  Country: US (occurrence: US)
  Receive Date: 20130911
  Receipt Date: 20130911
  Transmission Date: 20140515
  Serious: No
  Sender: FDA-Public Use
  Company Number: US-BAYER-2013-109231

PATIENT
  Age: 70 Year
  Sex: Female
  Weight: 73 kg

DRUGS (2)
  1. ALEVE CAPLET [Suspect]
     Indication: INFLAMMATION
     Dosage: 2 DF, BID
     Route: 048
  2. BAYER EXTRA STRENGTH ASPIRIN [Suspect]
     Dosage: UNK
     Route: 048

REACTIONS (4)
  - Headache [Not Recovered/Not Resolved]
  - Extra dose administered [None]
  - Off label use [None]
  - Nausea [None]
